FAERS Safety Report 4536210-2 (Version None)
Quarter: 2004Q4

REPORT INFORMATION
  Report Type: 
  Country: None (occurrence: None)
  Receive Date: 20041223
  Receipt Date: 20041214
  Transmission Date: 20050328
  Serious: Yes (Disabling)
  Sender: FDA-Public Use
  Company Number: GB-GLAXOSMITHKLINE-B0361887A

PATIENT
  Age: 58 Year
  Sex: Female

DRUGS (3)
  1. ZYBAN [Suspect]
     Dosage: 1TAB PER DAY
     Route: 048
     Dates: start: 20040701
  2. PROCYCLIDINE HYDROCHLORIDE 2MG TAB [Suspect]
     Route: 065
  3. THYROXINE [Concomitant]
     Dosage: 50MCG PER DAY
     Route: 048
     Dates: start: 20040701

REACTIONS (3)
  - CHOREA [None]
  - DYSTONIA [None]
  - FACIAL NERVE DISORDER [None]
